FAERS Safety Report 9416702 (Version 3)
Quarter: 2013Q3

REPORT INFORMATION
  Report Type: Spontaneous
  Country: JP (occurrence: JP)
  Receive Date: 20130724
  Receipt Date: 20130807
  Transmission Date: 20140515
  Serious: No
  Sender: FDA-Public Use
  Company Number: JP-PFIZER INC-2013214471

PATIENT
  Age: 75 Year
  Sex: Female

DRUGS (3)
  1. CELECOX [Suspect]
     Indication: SCIATICA
     Dosage: UNK
     Route: 048
  2. CELECOX [Suspect]
     Dosage: UNK
     Route: 048
     Dates: start: 20130710, end: 20130712
  3. MUCOSTA [Concomitant]
     Dosage: UNK
     Route: 048

REACTIONS (3)
  - Off label use [Unknown]
  - Rash [Recovered/Resolved]
  - Face oedema [Recovered/Resolved]
